FAERS Safety Report 13383619 (Version 1)
Quarter: 2017Q1

REPORT INFORMATION
  Report Type: Spontaneous
  Country: JP (occurrence: JP)
  Receive Date: 20170329
  Receipt Date: 20170329
  Transmission Date: 20170429
  Serious: Yes (Other)
  Sender: FDA-Public Use
  Company Number: JP-PFIZER INC-2016522094

PATIENT
  Age: 79 Year
  Sex: Female

DRUGS (5)
  1. HEPARIN [Concomitant]
     Active Substance: HEPARIN SODIUM
     Indication: COAGULATION TIME ABNORMAL
     Dosage: UNK
     Route: 042
  2. DOPAMINE HCL [Suspect]
     Active Substance: DOPAMINE HYDROCHLORIDE
     Indication: BLOOD PRESSURE FLUCTUATION
     Dosage: 12 UG/KG, PER MIN
     Route: 041
  3. CILOSTAZOL. [Concomitant]
     Active Substance: CILOSTAZOL
     Indication: ANTIPLATELET THERAPY
     Dosage: 200 MG, UNK
  4. ETILEFRINE [Concomitant]
     Active Substance: ETILEFRINE
     Dosage: 1 MG, UNK
  5. CLOPIDOGREL [Concomitant]
     Active Substance: CLOPIDOGREL BISULFATE
     Indication: THROMBOSIS PROPHYLAXIS
     Dosage: 75 MG, UNK

REACTIONS (1)
  - Stress cardiomyopathy [Recovering/Resolving]
